FAERS Safety Report 16307392 (Version 4)
Quarter: 2019Q2

REPORT INFORMATION
  Report Type: Report from Study
  Country: JP (occurrence: JP)
  Receive Date: 20190514
  Receipt Date: 20190524
  Transmission Date: 20190711
  Serious: Yes (Hospitalization)
  Sender: FDA-Public Use
  Company Number: JP-ROCHE-2315416

PATIENT
  Age: 72 Year
  Sex: Male
  Weight: 58.3 kg

DRUGS (14)
  1. ATEZOLIZUMAB. [Suspect]
     Active Substance: ATEZOLIZUMAB
     Indication: NON-SMALL CELL LUNG CANCER
     Route: 041
     Dates: start: 20190424
  2. NESINA [Concomitant]
     Active Substance: ALOGLIPTIN BENZOATE
     Indication: DIABETES MELLITUS
     Dosage: AFTER THE BREAKFAST
     Route: 048
     Dates: start: 2009
  3. ANTEBATE [Concomitant]
     Active Substance: BETAMETHASONE DIPROPIONATE
     Indication: SKIN ULCER
     Dosage: IT IS A PROPER QUANTITY DURING ONE-TWICE/DAY.
     Route: 061
     Dates: start: 20190430
  4. HUMALOG [Concomitant]
     Active Substance: INSULIN LISPRO
     Indication: DIABETES MELLITUS
     Dosage: IT ADMINISTERS IT ACCORDING TO THE SCALE ACCORDING TO IMMEDIATELY AFTER FOOD, ?BS, AND THE DIETARY D
     Route: 058
     Dates: start: 20190424
  5. OXAROL [Concomitant]
     Active Substance: MAXACALCITOL
     Indication: SKIN ULCER
     Dosage: PROPER QUANTITY
     Route: 061
     Dates: start: 20190430
  6. BEVACIZUMAB. [Suspect]
     Active Substance: BEVACIZUMAB
     Indication: NON-SMALL CELL LUNG CANCER
     Route: 042
     Dates: start: 20190424
  7. ALIMTA [Suspect]
     Active Substance: PEMETREXED DISODIUM
     Indication: NON-SMALL CELL LUNG CANCER
     Route: 042
     Dates: start: 20190424
  8. URSO [Concomitant]
     Active Substance: URSODIOL
     Indication: HEPATIC STEATOSIS
     Dosage: AFTER THE SUPPER IN THE MORNING
     Route: 048
     Dates: start: 2007
  9. OXAROL [Concomitant]
     Active Substance: MAXACALCITOL
     Indication: SKIN ULCER
     Dosage: PROPER QUANTITY
     Route: 061
     Dates: start: 20190430
  10. MAGMITT [Concomitant]
     Active Substance: MAGNESIUM OXIDE
     Indication: CONSTIPATION
     Dosage: AFTER EVERY MEAL
     Route: 048
     Dates: start: 20190430, end: 20190502
  11. CARBOPLATIN. [Suspect]
     Active Substance: CARBOPLATIN
     Indication: NON-SMALL CELL LUNG CANCER
     Dosage: DOSE: AREA UNDER CURVE (AUC) 5
     Route: 042
     Dates: start: 20190424
  12. OLMETEC [Concomitant]
     Active Substance: OLMESARTAN MEDOXOMIL
     Indication: HYPERTENSION
     Dosage: AFTER THE BREAKFAST
     Route: 048
  13. NORVASC [Concomitant]
     Active Substance: AMLODIPINE BESYLATE
     Indication: HYPERTENSION
     Dosage: AFTER THE BREAKFAST
     Route: 048
     Dates: start: 2009
  14. ANTEBATE [Concomitant]
     Active Substance: BETAMETHASONE DIPROPIONATE
     Indication: SKIN ULCER
     Dosage: PROPER QUANTITY
     Route: 061
     Dates: start: 20190430

REACTIONS (2)
  - Sepsis [Recovered/Resolved]
  - Disseminated intravascular coagulation [Recovered/Resolved]

NARRATIVE: CASE EVENT DATE: 20190501
